FAERS Safety Report 12277266 (Version 2)
Quarter: 2016Q4

REPORT INFORMATION
  Report Type: Spontaneous
  Country: US (occurrence: US)
  Receive Date: 20160418
  Receipt Date: 20161011
  Transmission Date: 20170207
  Serious: No
  Sender: FDA-Public Use
  Company Number: US-TEVA-640121USA

PATIENT
  Age: 63 Year
  Sex: Female

DRUGS (2)
  1. ZECUITY [Suspect]
     Active Substance: SUMATRIPTAN SUCCINATE
     Dosage: 6.5 MG / 4 HOURS
     Route: 062
     Dates: start: 20160225, end: 20160225
  2. ZECUITY [Suspect]
     Active Substance: SUMATRIPTAN SUCCINATE
     Dosage: 6.5 MG / 4 HOURS
     Route: 062
     Dates: start: 20160226, end: 20160226

REACTIONS (2)
  - Device battery issue [Unknown]
  - Application site vesicles [Unknown]

NARRATIVE: CASE EVENT DATE: 20160225
